FAERS Safety Report 23431964 (Version 1)
Quarter: 2024Q1

REPORT INFORMATION
  Report Type: Spontaneous
  Country: US (occurrence: None)
  Receive Date: 20240122
  Receipt Date: 20240122
  Transmission Date: 20240410
  Serious: Yes (Other)
  Sender: FDA-Public Use
  Company Number: None

PATIENT
  Age: 62 Year
  Sex: Female
  Weight: 118 kg

DRUGS (2)
  1. CAMZYOS [Suspect]
     Active Substance: MAVACAMTEN
     Indication: Cardiomyopathy
     Dosage: 10 MG DAILY ORAL
     Route: 048
     Dates: start: 20230721
  2. Propranolol LA 120 mg [Concomitant]
     Dates: start: 20230731

REACTIONS (2)
  - Weight decreased [None]
  - Muscular weakness [None]

NARRATIVE: CASE EVENT DATE: 20240120
